FAERS Safety Report 7594169-8 (Version None)
Quarter: 2011Q3

REPORT INFORMATION
  Report Type: 
  Country: None (occurrence: None)
  Receive Date: 20110706
  Receipt Date: 20110624
  Transmission Date: 20111222
  Serious: Yes (Hospitalization)
  Sender: FDA-Public Use
  Company Number: PHHO2011US10997

PATIENT
  Sex: Female

DRUGS (1)
  1. EXJADE [Suspect]
     Indication: SICKLE CELL ANAEMIA
     Dosage: 2500 MG, UNK
     Route: 048
     Dates: start: 20090915

REACTIONS (2)
  - PYELONEPHRITIS ACUTE [None]
  - TRANSIENT ISCHAEMIC ATTACK [None]
